FAERS Safety Report 17837333 (Version 2)
Quarter: 2025Q3

REPORT INFORMATION
  Report Type: Spontaneous
  Country: EU (occurrence: EU)
  Receive Date: 20200529
  Receipt Date: 20250705
  Transmission Date: 20251021
  Serious: Yes (Other)
  Sender: AUROBINDO
  Company Number: EU-ALTER-2020-00183

PATIENT
  Age: 72 Year
  Sex: Male

DRUGS (5)
  1. ESCITALOPRAM [Suspect]
     Active Substance: ESCITALOPRAM OXALATE
     Indication: Anxiety disorder
     Route: 065
  2. DARIFENACIN HYDROBROMIDE [Suspect]
     Active Substance: DARIFENACIN HYDROBROMIDE
     Indication: Benign prostatic hyperplasia
     Route: 065
  3. ALFUZOSIN [Concomitant]
     Active Substance: ALFUZOSIN
     Indication: Benign prostatic hyperplasia
     Route: 065
  4. METFORMIN [Concomitant]
     Active Substance: METFORMIN HYDROCHLORIDE
     Indication: Product used for unknown indication
     Route: 065
  5. SITAGLIPTIN [Concomitant]
     Active Substance: SITAGLIPTIN
     Indication: Product used for unknown indication
     Dosage: 50 MILLIGRAM, TWO TIMES A DAY
     Route: 065

REACTIONS (1)
  - Delirium [Unknown]
